FAERS Safety Report 8512518-0 (Version None)
Quarter: 2012Q3

REPORT INFORMATION
  Report Type: 
  Country: None (occurrence: None)
  Receive Date: 20120716
  Receipt Date: 20120706
  Transmission Date: 20120928
  Serious: Yes (Other)
  Sender: FDA-Public Use
  Company Number: GB-GLAXOSMITHKLINE-B0813372B

PATIENT
  Sex: Female

DRUGS (3)
  1. LAMOTRIGINE [Suspect]
     Indication: EPILEPSY
     Dosage: 300MG PER DAY
     Route: 065
  2. LAMOTRIGINE [Suspect]
     Indication: PRODUCT USED FOR UNKNOWN INDICATION
     Route: 067
  3. FOLIC ACID [Concomitant]

REACTIONS (4)
  - MATERNAL EXPOSURE DURING PREGNANCY [None]
  - CONVULSION [None]
  - LIVE BIRTH [None]
  - EXPOSURE VIA SEMEN [None]
